FAERS Safety Report 15491923 (Version 1)
Quarter: 2018Q4

REPORT INFORMATION
  Report Type: Spontaneous
  Country: JP (occurrence: JP)
  Receive Date: 20181012
  Receipt Date: 20181012
  Transmission Date: 20190205
  Serious: Yes (Other)
  Sender: FDA-Public Use
  Company Number: JP-SUN PHARMACEUTICAL INDUSTRIES LTD-2018R1-187454

PATIENT
  Sex: Male

DRUGS (5)
  1. ZONISAMIDE. [Concomitant]
     Active Substance: ZONISAMIDE
     Indication: SEIZURE
     Route: 065
  2. VALPROIC ACID. [Suspect]
     Active Substance: VALPROIC ACID
     Indication: SEIZURE
     Route: 065
  3. CLONAZEPAM. [Concomitant]
     Active Substance: CLONAZEPAM
     Indication: SEIZURE
     Route: 065
  4. PYRIDOXAL PHOSPHATE [Concomitant]
     Active Substance: PYRIDOXAL PHOSPHATE
     Indication: SEIZURE
     Route: 065
  5. ADRENOCORTICOTROPHIC HORMONE (ACTH)-ZN [Concomitant]
     Indication: SEIZURE
     Route: 065

REACTIONS (4)
  - Infantile spasms [Unknown]
  - Automatism [Unknown]
  - Condition aggravated [Unknown]
  - Focal dyscognitive seizures [Unknown]
